FAERS Safety Report 8353845-X (Version None)
Quarter: 2012Q2

REPORT INFORMATION
  Report Type: 
  Country: None (occurrence: None)
  Receive Date: 20120511
  Receipt Date: 20120106
  Transmission Date: 20120825
  Serious: No
  Sender: FDA-Public Use
  Company Number: US-GLAXOSMITHKLINE-A0960410A

PATIENT
  Age: 84 Year
  Sex: Female

DRUGS (11)
  1. CASODEX [Concomitant]
  2. MAGNESIUM [Concomitant]
  3. PROMETHAZINE [Concomitant]
  4. UNSPECIFIED MEDICATION [Concomitant]
     Indication: RESTLESS LEGS SYNDROME
  5. TYKERB [Suspect]
     Indication: BREAST CANCER
     Dosage: 1250MG PER DAY
     Route: 048
     Dates: start: 20120101
  6. ZOMETA [Concomitant]
  7. HYDREA [Concomitant]
  8. NITROFURANTOIN (MONOHYDRATE/MACROCRYSTALS) [Concomitant]
  9. AMLODIPINE BESYLATE [Concomitant]
  10. LEVOTHYROXINE SODIUM [Concomitant]
  11. CARVEDILOL [Concomitant]

REACTIONS (3)
  - DIARRHOEA [None]
  - PRURITUS [None]
  - FATIGUE [None]
